FAERS Safety Report 20376090 (Version 1)
Quarter: 2022Q1

REPORT INFORMATION
  Report Type: Spontaneous
  Country: JP (occurrence: JP)
  Receive Date: 20220125
  Receipt Date: 20220125
  Transmission Date: 20220423
  Serious: Yes (Other)
  Sender: FDA-Public Use
  Company Number: JP-TEVA-2022-JP-2001424

PATIENT
  Age: 30 Year
  Sex: Male

DRUGS (6)
  1. WARFARIN [Suspect]
     Active Substance: WARFARIN
     Indication: Anticoagulant therapy
     Dosage: 2 MILLIGRAM DAILY;
     Route: 065
  2. WARFARIN [Suspect]
     Active Substance: WARFARIN
     Indication: Anticoagulant therapy
     Dosage: 3MG DAILY; INCREASED UPTO 25MG DAILY
     Route: 048
  3. DABIGATRAN ETEXILATE [Suspect]
     Active Substance: DABIGATRAN ETEXILATE
     Indication: Thrombosis prophylaxis
     Dosage: 300 MILLIGRAM DAILY;
     Route: 065
  4. ASPIRIN [Concomitant]
     Active Substance: ASPIRIN
     Indication: Antiplatelet therapy
     Dosage: 100 MILLIGRAM DAILY;
     Route: 065
  5. HEPARIN [Concomitant]
     Active Substance: HEPARIN SODIUM
     Indication: Anticoagulant therapy
     Route: 065
  6. BUCOLOME [Concomitant]
     Active Substance: BUCOLOME
     Dosage: 600MG
     Route: 065

REACTIONS (2)
  - Off label use [Unknown]
  - Drug resistance [Unknown]
